FAERS Safety Report 5511575-3 (Version None)
Quarter: 2007Q4

REPORT INFORMATION
  Report Type: 
  Country: None (occurrence: None)
  Receive Date: 20071109
  Receipt Date: 20071105
  Transmission Date: 20080405
  Serious: Yes (Death, Other)
  Sender: FDA-Public Use
  Company Number: PHEH2007US14469

PATIENT
  Sex: Female

DRUGS (1)
  1. ZOMETA [Suspect]

REACTIONS (6)
  - ANHEDONIA [None]
  - ANXIETY [None]
  - DEATH [None]
  - INJURY [None]
  - OSTEONECROSIS [None]
  - PAIN [None]
